FAERS Safety Report 7907594-X (Version None)
Quarter: 2011Q4

REPORT INFORMATION
  Report Type: 
  Country: None (occurrence: None)
  Receive Date: 20111110
  Receipt Date: 20111108
  Transmission Date: 20120403
  Serious: Yes (Death, Life-Threatening, Hospitalization)
  Sender: FDA-Public Use
  Company Number: PHHY2010US86412

PATIENT
  Sex: Female

DRUGS (2)
  1. TOBI [Suspect]
     Indication: BRONCHITIS CHRONIC
  2. TOBI [Suspect]
     Indication: OBSTRUCTIVE AIRWAYS DISORDER
     Dosage: 300 MG, BID
     Dates: start: 20101119

REACTIONS (2)
  - DEATH [None]
  - RESPIRATORY ARREST [None]
